FAERS Safety Report 9511489 (Version 1)
Quarter: 2013Q3

REPORT INFORMATION
  Report Type: Spontaneous
  Country: US (occurrence: None)
  Receive Date: 20130906
  Receipt Date: 20130906
  Transmission Date: 20140515
  Serious: Yes (Other)
  Sender: FDA-Public Use
  Company Number: 20130466

PATIENT
  Age: 47 Year
  Sex: Male

DRUGS (2)
  1. DEXAMETHASONE SODIUM PHOSPHATE INJECTION, USP 94901-25) 4 MG/ML [Suspect]
     Indication: PRODUCT USED FOR UNKNOWN INDICATION
     Dosage: 4-6 MG EVERY 6 HOURS
  2. INSULIN [Concomitant]

REACTIONS (3)
  - Catabolic state [None]
  - Hypernatraemia [None]
  - Hyperosmolar state [None]
